FAERS Safety Report 8416793 (Version 2)
Quarter: 2013Q2

REPORT INFORMATION
  Report Type: Spontaneous
  Country: VE (occurrence: VE)
  Receive Date: 20120220
  Receipt Date: 20130514
  Transmission Date: 20140414
  Serious: Yes (Hospitalization)
  Sender: FDA-Public Use
  Company Number: PHHY2012VE011754

PATIENT
  Age: 76 Year
  Sex: Female

DRUGS (3)
  1. ONBREZ [Suspect]
     Indication: CHRONIC OBSTRUCTIVE PULMONARY DISEASE
     Dosage: 150 UG, QD
     Dates: start: 201201
  2. CALCIBON D [Concomitant]
     Indication: OSTEOPOROSIS
     Dosage: UNK
     Route: 048
     Dates: start: 201201
  3. ZANIDIP [Concomitant]
     Indication: HYPERTENSION
     Dosage: UNK
     Route: 048
     Dates: start: 201201

REACTIONS (2)
  - Coronary artery disease [Recovered/Resolved]
  - Electrocardiogram ST segment elevation [Unknown]
